FAERS Safety Report 6401872-1 (Version None)
Quarter: 2009Q4

REPORT INFORMATION
  Report Type: 
  Country: None (occurrence: None)
  Receive Date: 20091013
  Receipt Date: 20091013
  Transmission Date: 20100525
  Serious: Yes (Other)
  Sender: FDA-Public Use
  Company Number: None

PATIENT
  Sex: Female
  Weight: 61.2356 kg

DRUGS (1)
  1. MEFLOQUINE HCL [Suspect]
     Indication: MALARIA PROPHYLAXIS
     Dosage: 1 PILL 1 TIME PER WEEK PO
     Route: 048
     Dates: start: 20040701, end: 20040915

REACTIONS (8)
  - ACTIVITIES OF DAILY LIVING IMPAIRED [None]
  - ANXIETY [None]
  - FEAR [None]
  - HEART RATE INCREASED [None]
  - HYPERSOMNIA [None]
  - INSOMNIA [None]
  - MENTAL DISORDER [None]
  - PANIC ATTACK [None]
